FAERS Safety Report 13416306 (Version 1)
Quarter: 2017Q2

REPORT INFORMATION
  Report Type: Spontaneous
  Country: US (occurrence: US)
  Receive Date: 20170406
  Receipt Date: 20170406
  Transmission Date: 20170830
  Serious: Yes (Hospitalization, Other)
  Sender: FDA-Public Use
  Company Number: US-TEVA-755547USA

PATIENT
  Age: 31 Year
  Sex: Female
  Weight: 59 kg

DRUGS (14)
  1. LINEZOLID. [Concomitant]
     Active Substance: LINEZOLID
     Indication: MENINGITIS STAPHYLOCOCCAL
     Route: 042
  2. SIROLIMUS. [Interacting]
     Active Substance: SIROLIMUS
     Indication: GRAFT VERSUS HOST DISEASE IN SKIN
     Dosage: DOSE REDUCED:4MG DAILY OVER NEXT 8D, DOSE FURTHER REDUCED: 0.4MG DAILY AFTER VORICONAZOLE RE-STARTED
     Route: 048
  3. VANCOMYCIN [Concomitant]
     Active Substance: VANCOMYCIN
     Indication: ANTIBIOTIC THERAPY
     Route: 065
  4. MYCOPHENOLATE [Concomitant]
     Active Substance: MYCOPHENOLIC ACID
     Indication: PROPHYLAXIS AGAINST GRAFT VERSUS HOST DISEASE
     Route: 065
  5. ANTI-THYMOCYTE GLOBULIN (RABBIT) NOS [Concomitant]
     Active Substance: LAPINE T-LYMPHOCYTE IMMUNE GLOBULIN
     Indication: GRAFT VERSUS HOST DISEASE IN SKIN
     Route: 065
  6. OFLOXACIN. [Concomitant]
     Active Substance: OFLOXACIN
     Indication: OTITIS EXTERNA
     Route: 050
  7. CEFEPIME [Concomitant]
     Active Substance: CEFEPIME HYDROCHLORIDE
     Indication: ANTIBIOTIC THERAPY
     Route: 065
  8. SIROLIMUS. [Interacting]
     Active Substance: SIROLIMUS
     Indication: GRAFT VERSUS HOST DISEASE IN SKIN
     Dosage: DOSE WAS INCREASED TO 16-18MG DAILY, THEN DOSE WAS REDUCED
     Route: 048
  9. SIROLIMUS. [Interacting]
     Active Substance: SIROLIMUS
     Indication: PROPHYLAXIS AGAINST GRAFT VERSUS HOST DISEASE
     Dosage: 0.4MG DAILY. DOSE WAS INCREASED.
     Route: 048
  10. SIROLIMUS. [Interacting]
     Active Substance: SIROLIMUS
     Indication: GRAFT VERSUS HOST DISEASE IN SKIN
     Dosage: DOSE WAS INCREASED TO 12MG LOADING DOSE, LATER DOSE WAS FURTHER INCREASED.
     Route: 048
  11. RIFAMPICIN [Interacting]
     Active Substance: RIFAMPIN
     Indication: MENINGITIS STAPHYLOCOCCAL
     Route: 042
  12. MICAFUNGIN [Concomitant]
     Active Substance: MICAFUNGIN
     Indication: ANTIFUNGAL PROPHYLAXIS
     Dosage: 150MG DAILY
     Route: 042
  13. VORICONAZOLE. [Suspect]
     Active Substance: VORICONAZOLE
     Indication: ANTIFUNGAL PROPHYLAXIS
     Route: 048
  14. ETANERCEPT [Concomitant]
     Active Substance: ETANERCEPT
     Indication: GRAFT VERSUS HOST DISEASE IN SKIN
     Route: 065

REACTIONS (13)
  - Pain in extremity [Recovered/Resolved]
  - Pyrexia [Recovered/Resolved]
  - Bacteraemia [Recovered/Resolved]
  - Drug level decreased [Recovered/Resolved]
  - Otitis externa [Recovered/Resolved]
  - Drug interaction [Recovered/Resolved]
  - Cystitis [Unknown]
  - Human herpesvirus 6 infection [Unknown]
  - Graft versus host disease in skin [Not Recovered/Not Resolved]
  - Meningitis bacterial [Recovered/Resolved]
  - BK virus infection [Unknown]
  - Staphylococcal infection [Recovered/Resolved]
  - Sepsis [Recovered/Resolved]
